FAERS Safety Report 8165697-1 (Version None)
Quarter: 2012Q1

REPORT INFORMATION
  Report Type: 
  Country: None (occurrence: None)
  Receive Date: 20120223
  Receipt Date: 20120223
  Transmission Date: 20120608
  Serious: Yes (Hospitalization)
  Sender: FDA-Public Use
  Company Number: None

PATIENT
  Sex: Female
  Weight: 73.4 kg

DRUGS (4)
  1. FLUOROURACIL [Suspect]
     Dosage: 900 MG
     Dates: end: 20120118
  2. HYDROCHLOROTHIAZIDE [Concomitant]
  3. CYCLOPHOSPHAMIDE [Suspect]
     Dosage: 900 MG
     Dates: end: 20120118
  4. ELLENCE [Suspect]
     Dosage: 134 MG
     Dates: end: 20120118

REACTIONS (6)
  - POLLAKIURIA [None]
  - DYSPNOEA [None]
  - ORTHOSTATIC HYPOTENSION [None]
  - DIZZINESS [None]
  - LOSS OF CONSCIOUSNESS [None]
  - SYNCOPE [None]
